FAERS Safety Report 5470868-9 (Version None)
Quarter: 2007Q3

REPORT INFORMATION
  Report Type: 
  Country: None (occurrence: None)
  Receive Date: 20070928
  Receipt Date: 20070927
  Transmission Date: 20080115
  Serious: Yes (Other)
  Sender: FDA-Public Use
  Company Number: A0670331A

PATIENT
  Sex: Female

DRUGS (2)
  1. ALLI [Suspect]
     Indication: WEIGHT CONTROL
     Dates: start: 20070730, end: 20070810
  2. ALLI [Suspect]
     Indication: WEIGHT DECREASED
     Dates: start: 20070730, end: 20070810

REACTIONS (6)
  - ABDOMINAL PAIN LOWER [None]
  - DIARRHOEA [None]
  - RENAL FAILURE [None]
  - URETHRAL OBSTRUCTION [None]
  - URETHRAL STENOSIS [None]
  - URINARY RETENTION [None]
